FAERS Safety Report 4896762-X (Version None)
Quarter: 2006Q1

REPORT INFORMATION
  Report Type: 
  Country: None (occurrence: None)
  Receive Date: 20060131
  Receipt Date: 20051013
  Transmission Date: 20060701
  Serious: Yes (Other)
  Sender: FDA-Public Use
  Company Number: PHBS2005JP15086

PATIENT
  Age: 77 Year
  Sex: Female

DRUGS (13)
  1. TEGRETOL [Suspect]
     Indication: FACIAL NEURALGIA
     Dosage: 300 MG/DAY
     Route: 048
     Dates: start: 20050930, end: 20051002
  2. TEGRETOL [Suspect]
     Dosage: 600 MG/DAY
     Route: 048
     Dates: start: 20051003, end: 20051007
  3. AMLODIN [Concomitant]
     Route: 048
     Dates: end: 20051007
  4. MUCOSTA [Concomitant]
     Route: 048
     Dates: end: 20051007
  5. CERCINE [Concomitant]
     Route: 048
     Dates: end: 20051007
  6. MADOPAR [Concomitant]
     Route: 048
     Dates: end: 20051007
  7. CABASER [Concomitant]
     Route: 048
     Dates: end: 20051007
  8. RENIVEZE [Concomitant]
     Route: 048
     Dates: end: 20051007
  9. SYMMETREL [Concomitant]
     Route: 048
     Dates: end: 20051007
  10. D ALFA [Concomitant]
     Route: 048
     Dates: end: 20051007
  11. CYTOTEC [Concomitant]
     Indication: FACIAL NEURALGIA
     Dosage: 3 DF
     Route: 048
     Dates: start: 20050928, end: 20051007
  12. MAGNESIUM OXIDE [Concomitant]
     Route: 048
     Dates: end: 20051010
  13. LOXIPAIN [Concomitant]
     Indication: FACIAL NEURALGIA
     Dosage: 3 DF/DAY
     Route: 048
     Dates: start: 20050928

REACTIONS (18)
  - BLOOD ALKALINE PHOSPHATASE INCREASED [None]
  - BLOOD CREATININE INCREASED [None]
  - BLOOD LACTATE DEHYDROGENASE INCREASED [None]
  - BLOOD UREA INCREASED [None]
  - C-REACTIVE PROTEIN INCREASED [None]
  - DECREASED APPETITE [None]
  - DEHYDRATION [None]
  - DEPRESSED LEVEL OF CONSCIOUSNESS [None]
  - DRUG INEFFECTIVE [None]
  - DRUG LEVEL INCREASED [None]
  - DRUG TOXICITY [None]
  - INTERSTITIAL LUNG DISEASE [None]
  - NAUSEA [None]
  - OVERDOSE [None]
  - PNEUMONIA ASPIRATION [None]
  - PYREXIA [None]
  - RENAL IMPAIRMENT [None]
  - VOMITING [None]
